FAERS Safety Report 10239119 (Version 1)
Quarter: 2014Q2

REPORT INFORMATION
  Report Type: Other
  Country: US (occurrence: US)
  Receive Date: 20140616
  Receipt Date: 20140616
  Transmission Date: 20141212
  Serious: Yes (Other)
  Sender: FDA-Public Use
  Company Number: US-ENDO PHARMACEUTICALS INC.-OPIR20140006

PATIENT
  Sex: Female

DRUGS (1)
  1. OPANA [Suspect]
     Indication: DRUG DIVERSION
     Dosage: UNK
     Route: 065

REACTIONS (1)
  - Drug diversion [Unknown]
